FAERS Safety Report 19519128 (Version 1)
Quarter: 2021Q3

REPORT INFORMATION
  Report Type: Report from Study
  Country: US (occurrence: US)
  Receive Date: 20210712
  Receipt Date: 20210712
  Transmission Date: 20211014
  Serious: Yes (Life-Threatening, Other)
  Sender: FDA-Public Use
  Company Number: US-MYLANLABS-2021M1027753

PATIENT
  Age: 60 Year
  Sex: Female
  Weight: 58.05 kg

DRUGS (2)
  1. GLATIRAMER ACETATE INJECTION [Suspect]
     Active Substance: GLATIRAMER ACETATE
     Indication: RELAPSING-REMITTING MULTIPLE SCLEROSIS
     Dosage: 40 MILLIGRAM, 3XW
     Route: 058
     Dates: start: 20210505, end: 20210521
  2. WHISPERJECT? AUTOINJECTOR [Suspect]
     Active Substance: DEVICE
     Indication: RELAPSING-REMITTING MULTIPLE SCLEROSIS
     Dosage: UNK

REACTIONS (17)
  - Anaphylactic reaction [Unknown]
  - Dysphonia [Unknown]
  - Speech disorder [Not Recovered/Not Resolved]
  - Chest discomfort [Not Recovered/Not Resolved]
  - Injection site erythema [Unknown]
  - Injection site urticaria [Not Recovered/Not Resolved]
  - Glossodynia [Not Recovered/Not Resolved]
  - Aphonia [Not Recovered/Not Resolved]
  - Throat tightness [Unknown]
  - Injection site swelling [Unknown]
  - Headache [Unknown]
  - Oral discomfort [Not Recovered/Not Resolved]
  - Device use issue [Unknown]
  - Injection site pain [Not Recovered/Not Resolved]
  - Sleep disorder [Unknown]
  - Oropharyngeal pain [Unknown]
  - Swollen tongue [Not Recovered/Not Resolved]

NARRATIVE: CASE EVENT DATE: 20210505
